FAERS Safety Report 16890462 (Version 2)
Quarter: 2019Q4

REPORT INFORMATION
  Report Type: Spontaneous
  Country: ES (occurrence: ES)
  Receive Date: 20191007
  Receipt Date: 20191007
  Transmission Date: 20200122
  Serious: Yes (Other)
  Sender: FDA-Public Use
  Company Number: ES-PFIZER INC-2019418335

PATIENT
  Age: 2 Year
  Sex: Female

DRUGS (2)
  1. FILGRASTIM [Suspect]
     Active Substance: FILGRASTIM
     Dosage: 5 UG/KG, CYCLIC (DAILY DURING HER THIRD CYCLE)
  2. LENOGRASTIM [Suspect]
     Active Substance: LENOGRASTIM
     Dosage: 2 UG/KG/DAY

REACTIONS (5)
  - Anaphylactic reaction [Recovered/Resolved]
  - Angioedema [Recovered/Resolved]
  - Eye pruritus [Recovered/Resolved]
  - Nasal pruritus [Recovered/Resolved]
  - Urticaria [Recovered/Resolved]
